FAERS Safety Report 4933148-3 (Version None)
Quarter: 2006Q1

REPORT INFORMATION
  Report Type: 
  Country: None (occurrence: None)
  Receive Date: 20060301
  Receipt Date: 20060301
  Transmission Date: 20060701
  Serious: Yes (Life-Threatening, Disabling)
  Sender: FDA-Public Use
  Company Number: None

PATIENT
  Age: 55 Year
  Sex: Female
  Weight: 65.7716 kg

DRUGS (1)
  1. SYNTHROID [Suspect]
     Indication: THYROID DISORDER
     Dosage: 0.15 MG ONE-A-DAY
     Dates: start: 19910101, end: 19950101

REACTIONS (5)
  - ELECTROCARDIOGRAM ABNORMAL [None]
  - GOITRE [None]
  - HEADACHE [None]
  - NERVOUSNESS [None]
  - OBSTRUCTIVE AIRWAYS DISORDER [None]
